FAERS Safety Report 15422285 (Version 2)
Quarter: 2018Q4

REPORT INFORMATION
  Report Type: Not Available
  Country: US (occurrence: US)
  Receive Date: 20180924
  Receipt Date: 20181016
  Transmission Date: 20190204
  Serious: Yes (Other)
  Sender: FDA-Public Use
  Company Number: US-NEUROCRINE BIOSCIENCES INC.-2018NBI02726

PATIENT
  Sex: Male

DRUGS (2)
  1. INGREZZA [Suspect]
     Active Substance: VALBENAZINE
     Indication: TARDIVE DYSKINESIA
     Dates: start: 20170818, end: 20171027
  2. INGREZZA [Suspect]
     Active Substance: VALBENAZINE
     Dates: start: 20171028

REACTIONS (2)
  - Pneumonia aspiration [Recovered/Resolved]
  - Tonsillitis [Recovered/Resolved]
